FAERS Safety Report 25263709 (Version 1)
Quarter: 2025Q2

REPORT INFORMATION
  Report Type: Spontaneous
  Country: IT (occurrence: IT)
  Receive Date: 20250502
  Receipt Date: 20250502
  Transmission Date: 20250716
  Serious: Yes (Hospitalization)
  Sender: CHEPLAPHARM
  Company Number: None

PATIENT
  Age: 55 Year
  Sex: Female

DRUGS (3)
  1. QUETIAPINE [Suspect]
     Active Substance: QUETIAPINE
     Indication: Intentional overdose
     Route: 048
     Dates: start: 20250401, end: 20250401
  2. CLONAZEPAM [Suspect]
     Active Substance: CLONAZEPAM
     Indication: Intentional overdose
     Route: 048
     Dates: start: 20250401, end: 20250401
  3. PAROXETINE [Suspect]
     Active Substance: PAROXETINE
     Indication: Intentional overdose
     Route: 048
     Dates: start: 20250401, end: 20250401

REACTIONS (4)
  - Anxiety [Not Recovered/Not Resolved]
  - Tremor [Not Recovered/Not Resolved]
  - Intentional overdose [Not Recovered/Not Resolved]
  - Drug abuse [Not Recovered/Not Resolved]

NARRATIVE: CASE EVENT DATE: 20250401
